FAERS Safety Report 14536292 (Version 2)
Quarter: 2018Q1

REPORT INFORMATION
  Report Type: Spontaneous
  Country: GR (occurrence: GR)
  Receive Date: 20180215
  Receipt Date: 20180321
  Transmission Date: 20180509
  Serious: Yes (Disabling, Other)
  Sender: FDA-Public Use
  Company Number: GR-SA-2018SA036871

PATIENT
  Age: 70 Year
  Sex: Male
  Weight: 72 kg

DRUGS (5)
  1. CLOPIDOGREL BISULFATE. [Suspect]
     Active Substance: CLOPIDOGREL BISULFATE
     Indication: CARDIOVASCULAR EVENT PROPHYLAXIS
     Route: 048
  2. LOPRESSOR [Suspect]
     Active Substance: METOPROLOL TARTRATE
     Dosage: DOSE: 1TAB/DAY, IN TWO HALF DOSES
     Route: 048
  3. CLOPIDOGREL BISULFATE. [Suspect]
     Active Substance: CLOPIDOGREL BISULFATE
     Indication: CARDIOVASCULAR EVENT PROPHYLAXIS
     Route: 048
     Dates: end: 201802
  4. SALOSPIR [Suspect]
     Active Substance: ASPIRIN
     Route: 048
  5. LOPRESSOR [Suspect]
     Active Substance: METOPROLOL TARTRATE
     Dosage: DOSAGE TEXT-1 TAB/DAY, IN TWO HALF DOSES
     Route: 048

REACTIONS (10)
  - Erectile dysfunction [Recovering/Resolving]
  - Alopecia [Recovering/Resolving]
  - Fatigue [Recovering/Resolving]
  - Dizziness [Recovering/Resolving]
  - Confusional state [Recovering/Resolving]
  - Vision blurred [Recovering/Resolving]
  - Amnesia [Recovering/Resolving]
  - Epistaxis [Recovered/Resolved]
  - Pain in extremity [Recovering/Resolving]
  - Constipation [Recovering/Resolving]

NARRATIVE: CASE EVENT DATE: 20180123
